FAERS Safety Report 16430750 (Version 1)
Quarter: 2019Q2

REPORT INFORMATION
  Report Type: Spontaneous
  Country: US (occurrence: US)
  Receive Date: 20190507
  Receipt Date: 20190507
  Transmission Date: 20190711
  Serious: Yes (Other)
  Sender: FDA-Public Use
  Company Number: None

PATIENT
  Age: 44 Year
  Sex: Female

DRUGS (1)
  1. TALTZ [Suspect]
     Active Substance: IXEKIZUMAB
     Indication: PSORIASIS
     Dosage: ?          OTHER FREQUENCY:160MG/WK0 80MG/WK2;?
     Route: 058
     Dates: start: 20190412

REACTIONS (6)
  - Injection site pain [None]
  - Abdominal pain [None]
  - Nephrolithiasis [None]
  - Injection site reaction [None]
  - Menstruation delayed [None]
  - Hot flush [None]

NARRATIVE: CASE EVENT DATE: 20190416
